FAERS Safety Report 9791876 (Version 1)
Quarter: 2014Q1

REPORT INFORMATION
  Report Type: Spontaneous
  Country: US (occurrence: US)
  Receive Date: 20140102
  Receipt Date: 20140102
  Transmission Date: 20141002
  Serious: No
  Sender: FDA-Public Use
  Company Number: US-PFIZER INC-2013374303

PATIENT
  Sex: Female

DRUGS (2)
  1. CELEBREX [Suspect]
     Indication: FLUID RETENTION
     Dosage: 200 MG, 1X/DAY
     Route: 048
     Dates: start: 2013, end: 2013
  2. CELEBREX [Suspect]
     Dosage: 400 MG (BY TAKING TWO 200MG CAPSULES), 1X/DAY
     Route: 048
     Dates: start: 2013

REACTIONS (3)
  - Off label use [Unknown]
  - Drug ineffective for unapproved indication [Unknown]
  - Pain [Unknown]
